FAERS Safety Report 6259347-9 (Version None)
Quarter: 2009Q3

REPORT INFORMATION
  Report Type: 
  Country: None (occurrence: None)
  Receive Date: 20090706
  Receipt Date: 20090623
  Transmission Date: 20100115
  Serious: Yes (Life-Threatening, Hospitalization)
  Sender: FDA-Public Use
  Company Number: 311279

PATIENT
  Age: 72 Year
  Sex: Male

DRUGS (12)
  1. CYTARABINE [Suspect]
     Indication: ACUTE MYELOID LEUKAEMIA
     Dosage: 20 MG/M2, 1 IN 1 DAY, SUBCUTANEOUS
     Route: 058
     Dates: start: 20090504, end: 20090513
  2. PREDNISOLONE [Concomitant]
  3. OMEPRAZOLE [Concomitant]
  4. ASPARCAM [Concomitant]
  5. ETAMSILATE [Concomitant]
  6. ENALAPRIL MALEATE [Concomitant]
  7. AMINOCAPROIC ACID [Concomitant]
  8. CARTEOLOL HYDROCHLORIDE [Concomitant]
  9. GLYCERYL TRINITRATE [Concomitant]
  10. NIFEDIPINE [Concomitant]
  11. KETOPROFEN [Concomitant]
  12. TRAMADOL HCL [Concomitant]

REACTIONS (1)
  - MYOCARDIAL INFARCTION [None]
